FAERS Safety Report 24141950 (Version 1)
Quarter: 2024Q3

REPORT INFORMATION
  Report Type: Spontaneous
  Country: GR (occurrence: None)
  Receive Date: 20240726
  Receipt Date: 20240726
  Transmission Date: 20241017
  Serious: Yes (Disabling, Other)
  Sender: ASTRAZENECA
  Company Number: 2024A168819

PATIENT
  Age: 68 Year
  Sex: Female

DRUGS (5)
  1. CRESTOR [Suspect]
     Active Substance: ROSUVASTATIN CALCIUM
     Indication: Hyperlipidaemia
     Dosage: 10 MILLIGRAM, 1/DAY
     Route: 048
     Dates: start: 20130201
  2. PITAVASTATIN [Suspect]
     Active Substance: PITAVASTATIN
     Indication: Hyperlipidaemia
     Dosage: 1 MILLIGRAM, 1/DAY
     Route: 048
     Dates: start: 20230102
  3. ATORVASTATIN CALCIUM [Suspect]
     Active Substance: ATORVASTATIN CALCIUM
     Indication: Hyperlipidaemia
     Dosage: 20 MILLIGRAM, 1/DAY
     Route: 048
     Dates: start: 20181201
  4. ATORVASTATIN CALCIUM [Suspect]
     Active Substance: ATORVASTATIN CALCIUM
     Indication: Hyperlipidaemia
     Dosage: 20 MILLIGRAM, 1/DAY
     Route: 048
     Dates: start: 20170201
  5. VALSABEN [Concomitant]
     Indication: Hypertension
     Dosage: 320 MILLIGRAM, 1/DAY
     Route: 048

REACTIONS (2)
  - Myalgia [Unknown]
  - Pain [Unknown]
